FAERS Safety Report 7105744-9 (Version None)
Quarter: 2010Q4

REPORT INFORMATION
  Report Type: 
  Country: None (occurrence: None)
  Receive Date: 20101116
  Receipt Date: 20101111
  Transmission Date: 20110411
  Serious: Yes (Death, Hospitalization, Other)
  Sender: FDA-Public Use
  Company Number: PHHY2010JP68703

PATIENT
  Age: 55 Year
  Sex: Male

DRUGS (5)
  1. VOLTAREN [Suspect]
     Indication: BACK PAIN
     Dosage: UNK
  2. FENTANYL [Concomitant]
     Dosage: UNK
     Route: 003
  3. ACETAMINOPHEN [Concomitant]
     Dosage: UNK
  4. CELECOXIB [Concomitant]
  5. LOXONIN [Concomitant]
     Dosage: UNK
     Route: 048

REACTIONS (9)
  - BILE DUCT STENOSIS [None]
  - CHOLANGITIS [None]
  - DEATH [None]
  - DUODENAL STENOSIS [None]
  - DUODENAL ULCER [None]
  - GASTRO-JEJUNOSTOMY [None]
  - HAEMATEMESIS [None]
  - JEJUNOSTOMY [None]
  - SEPTIC SHOCK [None]
